FAERS Safety Report 6758852-6 (Version None)
Quarter: 2010Q2

REPORT INFORMATION
  Report Type: 
  Country: None (occurrence: None)
  Receive Date: 20100607
  Receipt Date: 20100607
  Transmission Date: 20101027
  Serious: Yes (Hospitalization)
  Sender: FDA-Public Use
  Company Number: US-ROXANE LABORATORIES, INC.-2010-RO-00691RO

PATIENT
  Age: 78 Year
  Sex: Female
  Weight: 73 kg

DRUGS (2)
  1. HYDROMORPHONE HCL [Suspect]
     Indication: BACK PAIN
     Route: 048
     Dates: end: 20100323
  2. FLECTOR [Suspect]
     Indication: BACK PAIN
     Route: 061
     Dates: end: 20100323

REACTIONS (4)
  - CONSTIPATION [None]
  - FAECALOMA [None]
  - GASTRIC DILATATION [None]
  - WEIGHT DECREASED [None]
